FAERS Safety Report 20823656 (Version 1)
Quarter: 2022Q2

REPORT INFORMATION
  Report Type: Spontaneous
  Country: US (occurrence: US)
  Receive Date: 20220513
  Receipt Date: 20220513
  Transmission Date: 20220720
  Serious: No
  Sender: FDA-Public Use
  Company Number: US-BRISTOL-MYERS SQUIBB COMPANY-2022-022543

PATIENT
  Age: 76 Year
  Sex: Male
  Weight: 75.3 kg

DRUGS (3)
  1. REVLIMID [Suspect]
     Active Substance: LENALIDOMIDE
     Indication: Plasma cell myeloma
     Dosage: DOSE : 14;     FREQ : ONCE DAILY
     Route: 048
     Dates: start: 202203
  2. ASPIRIN [Concomitant]
     Active Substance: ASPIRIN
     Indication: Product used for unknown indication
  3. ELIQUIS [Concomitant]
     Active Substance: APIXABAN
     Indication: Product used for unknown indication
     Dosage: BY MOUTH TWICE DAILY

REACTIONS (2)
  - Faeces discoloured [Unknown]
  - Constipation [Unknown]

NARRATIVE: CASE EVENT DATE: 20220414
